FAERS Safety Report 14263292 (Version 2)
Quarter: 2018Q3

REPORT INFORMATION
  Report Type: Report from Study
  Country: JP (occurrence: JP)
  Receive Date: 20171208
  Receipt Date: 20180705
  Transmission Date: 20181010
  Serious: Yes (Hospitalization)
  Sender: FDA-Public Use
  Company Number: JP-AMGEN-JPNCT2017182722

PATIENT
  Age: 77 Year
  Sex: Female
  Weight: 42 kg

DRUGS (11)
  1. DENOSUMAB [Suspect]
     Active Substance: DENOSUMAB
     Dosage: 60 MG, UNK
     Route: 058
     Dates: start: 20151113
  2. BAKUMONDOTO [Concomitant]
     Active Substance: HERBALS
     Dosage: 9 G, QD
     Route: 048
  3. MYSLEE [Concomitant]
     Active Substance: ZOLPIDEM TARTRATE
     Dosage: 10 MG, QD
     Route: 048
  4. DENOSUMAB [Suspect]
     Active Substance: DENOSUMAB
     Indication: OSTEOPOROSIS
     Dosage: 60 MG, UNK
     Route: 058
     Dates: start: 20140606
  5. EDIROL [Concomitant]
     Active Substance: ELDECALCITOL
     Dosage: 0.75 MUG, QD
     Route: 048
  6. DENOSUMAB [Suspect]
     Active Substance: DENOSUMAB
     Dosage: 60 MG, UNK
     Route: 058
     Dates: start: 20141219
  7. PREDNISOLONE. [Concomitant]
     Active Substance: PREDNISOLONE
     Dosage: 10 MG, QD
     Route: 048
  8. TAURINE [Concomitant]
     Active Substance: TAURINE
     Dosage: 2940 MG, QD
     Route: 048
  9. URSO [Concomitant]
     Active Substance: URSODIOL
     Dosage: 900 MG, QD
     Route: 048
  10. BEZATOL [Concomitant]
     Active Substance: BEZAFIBRATE
     Dosage: 400 MG, QD
     Route: 048
  11. WARFARIN [Concomitant]
     Active Substance: WARFARIN
     Dosage: 2.5 MG, QD
     Route: 048
     Dates: start: 20150214

REACTIONS (1)
  - Osteoporotic fracture [Recovered/Resolved with Sequelae]

NARRATIVE: CASE EVENT DATE: 20160510
